FAERS Safety Report 24619862 (Version 3)
Quarter: 2025Q4

REPORT INFORMATION
  Report Type: Spontaneous
  Country: EU (occurrence: EU)
  Receive Date: 20241114
  Receipt Date: 20251117
  Transmission Date: 20260118
  Serious: Yes (Death, Other)
  Sender: SANDOZ
  Company Number: EU-MYLANLABS-MK-6010318

PATIENT
  Age: 45 Year
  Sex: Female

DRUGS (52)
  1. ALUMINUM HYDROXIDE\MAGNESIUM CARBONATE [Suspect]
     Active Substance: ALUMINUM HYDROXIDE\MAGNESIUM CARBONATE
     Indication: Product used for unknown indication
     Dosage: UNK
     Route: 065
     Dates: start: 20020927
  2. BETAMETHASONE [Suspect]
     Active Substance: BETAMETHASONE
     Dosage: 8 MG
     Route: 042
     Dates: start: 20021106, end: 20021110
  3. BETAMETHASONE [Suspect]
     Active Substance: BETAMETHASONE
     Indication: Product used for unknown indication
     Dosage: UNK
     Route: 042
     Dates: start: 20020927
  4. CALCIUM CARBONATE [Suspect]
     Active Substance: CALCIUM CARBONATE
     Indication: Agitation
     Dosage: 1 G, QD
     Route: 048
     Dates: start: 20020927, end: 20020927
  5. CALCIUM CARBONATE [Suspect]
     Active Substance: CALCIUM CARBONATE
     Dosage: UNK
     Route: 048
     Dates: start: 20021004
  6. CALCIUM GLUCONATE [Suspect]
     Active Substance: CALCIUM GLUCONATE
     Indication: Product used for unknown indication
     Dosage: 1 G
     Route: 065
     Dates: start: 20020927, end: 20021110
  7. CALCIUM GLUCONATE [Suspect]
     Active Substance: CALCIUM GLUCONATE
     Dosage: UNK
     Route: 065
     Dates: start: 20021009
  8. CANRENOATE POTASSIUM [Suspect]
     Active Substance: CANRENOATE POTASSIUM
     Indication: Agitation
     Dosage: UNK
     Route: 048
     Dates: start: 20021027
  9. CANRENOIC ACID [Suspect]
     Active Substance: CANRENOIC ACID
     Indication: Product used for unknown indication
     Dosage: UNK
     Route: 065
     Dates: start: 20021027
  10. CANRENOIC ACID [Suspect]
     Active Substance: CANRENOIC ACID
     Indication: Renal impairment
     Dosage: UNK
     Route: 048
     Dates: start: 20021004, end: 20021015
  11. CEFACLOR [Suspect]
     Active Substance: CEFACLOR
     Indication: Cystitis
     Dosage: 0.5 UG, QD
     Route: 065
     Dates: start: 20020927, end: 20021106
  12. CEFACLOR [Suspect]
     Active Substance: CEFACLOR
     Indication: Oral candidiasis
     Dosage: UNK
     Route: 065
  13. AMOXICILLIN\CLAVULANATE POTASSIUM [Suspect]
     Active Substance: AMOXICILLIN\CLAVULANATE POTASSIUM
     Indication: Pneumonia
     Dosage: 1200 MG, TID
     Route: 042
     Dates: start: 20021004, end: 20021019
  14. CORTISONE ACETATE [Suspect]
     Active Substance: CORTISONE ACETATE
     Indication: Product used for unknown indication
     Dosage: 25 MG, BID
     Route: 065
     Dates: start: 20020927, end: 20021103
  15. DIAZEPAM [Suspect]
     Active Substance: DIAZEPAM
     Indication: Agitation
     Dosage: UNK, QD
     Route: 065
     Dates: start: 20021009, end: 20021106
  16. DIAZEPAM [Suspect]
     Active Substance: DIAZEPAM
     Indication: Hallucination
  17. DIAZEPAM [Suspect]
     Active Substance: DIAZEPAM
     Indication: Agitation
     Dosage: UNK UNK, QD
     Route: 065
     Dates: start: 20021009, end: 20021106
  18. DIAZEPAM [Suspect]
     Active Substance: DIAZEPAM
     Indication: Hallucination
  19. FUROSEMIDE [Suspect]
     Active Substance: FUROSEMIDE
     Indication: Renal impairment
     Dosage: UNK
     Route: 042
     Dates: start: 20021027, end: 20021106
  20. FUROSEMIDE [Suspect]
     Active Substance: FUROSEMIDE
     Indication: Renal impairment
     Dosage: UNK
     Route: 048
     Dates: start: 20021004, end: 20021015
  21. FUROSEMIDE [Suspect]
     Active Substance: FUROSEMIDE
     Indication: Oliguria
  22. FLUDROCORTISONE [Suspect]
     Active Substance: FLUDROCORTISONE
     Indication: Product used for unknown indication
     Dosage: UNK
     Route: 065
     Dates: start: 20020927, end: 20021024
  23. HALOPERIDOL [Suspect]
     Active Substance: HALOPERIDOL
     Indication: Hallucination
     Dosage: UNK
     Route: 065
     Dates: start: 20021009, end: 20021104
  24. HALOPERIDOL [Suspect]
     Active Substance: HALOPERIDOL
     Indication: Hallucination
     Dosage: UNK
     Route: 065
     Dates: start: 20021009, end: 20021104
  25. HALOPERIDOL [Suspect]
     Active Substance: HALOPERIDOL
     Indication: Agitation
  26. ITRACONAZOLE [Suspect]
     Active Substance: ITRACONAZOLE
     Indication: Oral candidiasis
     Dosage: 100 MILLIGRAM
     Route: 065
     Dates: start: 20021009, end: 20021106
  27. ITRACONAZOLE [Suspect]
     Active Substance: ITRACONAZOLE
     Dosage: 100.000MG
     Route: 065
     Dates: start: 20021009, end: 20021106
  28. LEVOFLOXACIN [Suspect]
     Active Substance: LEVOFLOXACIN
     Indication: Pneumonia
     Dosage: 500 MILLIGRAM, QD
     Route: 048
     Dates: start: 20021004, end: 20021019
  29. LEVOFLOXACIN [Suspect]
     Active Substance: LEVOFLOXACIN
     Indication: Pneumonia
  30. METOCLOPRAMIDE [Suspect]
     Active Substance: METOCLOPRAMIDE
     Indication: Product used for unknown indication
     Dosage: UNK
     Route: 065
     Dates: start: 20020927
  31. NYSTATIN [Suspect]
     Active Substance: NYSTATIN
     Indication: Cystitis
     Dosage: 12 ML
     Route: 048
     Dates: start: 20020927, end: 20020927
  32. NYSTATIN [Suspect]
     Active Substance: NYSTATIN
     Indication: Oral candidiasis
     Dosage: 12 ML, QD
     Route: 065
     Dates: start: 20020927, end: 20021009
  33. NYSTATIN [Suspect]
     Active Substance: NYSTATIN
     Indication: Cystitis
  34. OMEPRAZOLE [Suspect]
     Active Substance: OMEPRAZOLE
     Indication: Product used for unknown indication
     Dosage: 20 MG, QD
     Route: 048
     Dates: start: 20020927, end: 20021103
  35. PANTOPRAZOLE [Suspect]
     Active Substance: PANTOPRAZOLE
     Indication: Prophylaxis
     Dosage: UNK
     Route: 048
     Dates: start: 20021009, end: 20021106
  36. CANRENOATE POTASSIUM [Suspect]
     Active Substance: CANRENOATE POTASSIUM
     Indication: Agitation
     Dosage: UNK
     Route: 048
     Dates: start: 20021004
  37. RABEPRAZOLE [Suspect]
     Active Substance: RABEPRAZOLE
     Indication: Product used for unknown indication
     Dosage: UNK
     Route: 065
     Dates: start: 20020929
  38. ALUMINUM HYDROXIDE [Concomitant]
     Active Substance: ALUMINUM HYDROXIDE
     Indication: Product used for unknown indication
     Dosage: UNK
     Route: 048
     Dates: start: 20020927, end: 20021106
  39. CALCITRIOL [Concomitant]
     Active Substance: CALCITRIOL
     Indication: Product used for unknown indication
     Dosage: UNK
     Route: 065
     Dates: start: 20020927
  40. CALCIUM LACTATE GLUCONATE ANHYDROUS [Concomitant]
     Active Substance: CALCIUM LACTATE GLUCONATE ANHYDROUS
     Indication: Product used for unknown indication
     Dosage: FIRST ADMIN DATE 27 SEP 2002
     Route: 065
  41. CHLORPHENIRAMINE MALEATE [Concomitant]
     Active Substance: CHLORPHENIRAMINE MALEATE
     Indication: Product used for unknown indication
     Dosage: UNK
     Route: 042
     Dates: start: 20021106
  42. GENTAMICIN [Concomitant]
     Active Substance: GENTAMICIN
     Indication: Product used for unknown indication
     Dosage: UNK
     Route: 061
     Dates: start: 20021106
  43. DEXTROSE [Concomitant]
     Active Substance: DEXTROSE MONOHYDRATE
     Indication: Product used for unknown indication
     Dosage: UNK
     Route: 041
     Dates: start: 20021106
  44. HYDROCORTISONE HEMISUCCINATE [Concomitant]
     Active Substance: HYDROCORTISONE HEMISUCCINATE
     Indication: Product used for unknown indication
     Dosage: FIRST ADMIN DATE 03 NOV 2002
     Route: 042
     Dates: end: 20021106
  45. HYDROCORTISONE HEMISUCCINATE [Concomitant]
     Active Substance: HYDROCORTISONE HEMISUCCINATE
     Indication: Product used for unknown indication
     Dosage: 200 MILLIGRAM
     Route: 042
     Dates: start: 20021103, end: 20021106
  46. INSULIN NOS [Concomitant]
     Active Substance: INSULIN NOS
     Indication: Product used for unknown indication
     Dosage: UNK
     Route: 065
     Dates: start: 20021106
  47. MAGNESIUM HYDROXIDE [Concomitant]
     Active Substance: MAGNESIUM HYDROXIDE
     Indication: Product used for unknown indication
     Dosage: UNK
     Route: 065
     Dates: start: 20020927
  48. PIPERACILLIN [Concomitant]
     Active Substance: PIPERACILLIN
     Indication: Product used for unknown indication
     Dosage: UNK
     Route: 065
     Dates: start: 20021102, end: 20021104
  49. POVIDONE-IODINE [Concomitant]
     Active Substance: POVIDONE-IODINE
     Indication: Product used for unknown indication
     Dosage: UNK
     Route: 065
     Dates: start: 20021106
  50. RANITIDINE [Concomitant]
     Active Substance: RANITIDINE
     Indication: Product used for unknown indication
     Dosage: FIRST ADMIN DATE 03 NOV 2002 ROUTE OF ADMIN (FREE TEXT): INTRAVENOUS (NOT OTHERWISE SPECIFIED)
     Route: 042
     Dates: end: 20021110
  51. RANITIDINE [Concomitant]
     Active Substance: RANITIDINE
     Dosage: FIRST ADMIN DATE 03 NOV 2002 ROUTE OF ADMIN (FREE TEXT): INTRAVENOUS (NOT OTHERWISE SPECIFIED)
     Route: 042
     Dates: end: 20021110
  52. RIFAMYCIN [Concomitant]
     Active Substance: RIFAMYCIN
     Indication: Product used for unknown indication
     Dosage: UNK
     Route: 065
     Dates: start: 20021104, end: 20021106

REACTIONS (20)
  - Toxic epidermal necrolysis [Fatal]
  - Rash macular [Fatal]
  - Rash [Fatal]
  - Blister [Fatal]
  - Pyrexia [Fatal]
  - Rash erythematous [Fatal]
  - Skin lesion [Fatal]
  - Skin exfoliation [Fatal]
  - Mouth ulceration [Fatal]
  - Staphylococcal sepsis [Fatal]
  - Septic shock [Fatal]
  - Skin infection [Fatal]
  - Polyglandular disorder [Unknown]
  - Chronic hepatitis [Unknown]
  - Vitiligo [Unknown]
  - Cystitis [Unknown]
  - Hypoparathyroidism [Unknown]
  - Endocrine disorder [Unknown]
  - Candida infection [Unknown]
  - Anaemia folate deficiency [Unknown]

NARRATIVE: CASE EVENT DATE: 20021001
